FAERS Safety Report 11744607 (Version 3)
Quarter: 2015Q4

REPORT INFORMATION
  Report Type: Spontaneous
  Country: US (occurrence: US)
  Receive Date: 20151116
  Receipt Date: 20151209
  Transmission Date: 20160304
  Serious: No
  Sender: FDA-Public Use
  Company Number: US-PFIZER INC-2015382110

PATIENT
  Sex: Female

DRUGS (2)
  1. DETROL LA [Suspect]
     Active Substance: TOLTERODINE TARTRATE
     Indication: INCONTINENCE
     Dosage: 4 MG, UNK
     Route: 048
     Dates: start: 201511
  2. DETROL LA [Suspect]
     Active Substance: TOLTERODINE TARTRATE
     Indication: SLEEP DISORDER

REACTIONS (3)
  - Anger [Unknown]
  - Dyspnoea [Unknown]
  - Insomnia [Unknown]
